FAERS Safety Report 13185917 (Version 2)
Quarter: 2017Q1

REPORT INFORMATION
  Report Type: Spontaneous
  Country: NL (occurrence: NL)
  Receive Date: 20170203
  Receipt Date: 20170215
  Transmission Date: 20170428
  Serious: Yes (Life-Threatening, Hospitalization, Other)
  Sender: FDA-Public Use
  Company Number: PHHY2017NL013356

PATIENT
  Age: 54 Year
  Sex: Female

DRUGS (6)
  1. LEVOTHYROXINE. [Concomitant]
     Active Substance: LEVOTHYROXINE
     Indication: HYPOTHYROIDISM
     Route: 065
  2. DOXYCYCLINE. [Concomitant]
     Active Substance: DOXYCYCLINE
     Indication: BACTERIAL INFECTION
     Route: 065
  3. MEROPENEM. [Concomitant]
     Active Substance: MEROPENEM
     Indication: BACTERIAL INFECTION
     Route: 065
  4. MINOCYCLINE [Suspect]
     Active Substance: MINOCYCLINE\MINOCYCLINE HYDROCHLORIDE
     Indication: ROSACEA
     Dosage: 100 MG, UNK
     Route: 065
  5. CEFUROXIME. [Concomitant]
     Active Substance: CEFUROXIME
     Indication: PNEUMONIA
     Route: 065
  6. CIPROFLOXACIN. [Concomitant]
     Active Substance: CIPROFLOXACIN
     Indication: PNEUMONIA
     Route: 065

REACTIONS (3)
  - Pneumonia [Recovered/Resolved]
  - Acute respiratory failure [Recovered/Resolved]
  - Lung disorder [Recovered/Resolved]
